FAERS Safety Report 7347894-8 (Version None)
Quarter: 2011Q1

REPORT INFORMATION
  Report Type: 
  Country: None (occurrence: None)
  Receive Date: 20110302
  Receipt Date: 20110216
  Transmission Date: 20110831
  Serious: Yes (Other)
  Sender: FDA-Public Use
  Company Number: 2010SP066483

PATIENT
  Age: 52 Year
  Sex: Male
  Weight: 75 kg

DRUGS (3)
  1. PEGASYS [Concomitant]
  2. VIRAFERONPEG [Suspect]
     Indication: HEPATITIS B
     Dosage: 50 MCG, QW, SC
     Route: 058
     Dates: start: 20100201, end: 20101201
  3. VIRAFERONPEG [Suspect]
     Indication: HEPATITIS B
     Dosage: 50 MCG, QW, SC
     Route: 058
     Dates: start: 20101223, end: 20101223

REACTIONS (5)
  - OCULAR HYPERAEMIA [None]
  - INJECTION SITE ERYTHEMA [None]
  - PYREXIA [None]
  - MALAISE [None]
  - INJECTION SITE PAIN [None]
